FAERS Safety Report 4829962-5 (Version None)
Quarter: 2005Q4

REPORT INFORMATION
  Report Type: 
  Country: None (occurrence: None)
  Receive Date: 20051115
  Receipt Date: 20051115
  Transmission Date: 20060501
  Serious: Yes (Hospitalization)
  Sender: FDA-Public Use
  Company Number: None

PATIENT
  Age: 74 Year
  Sex: Male
  Weight: 77.1115 kg

DRUGS (18)
  1. ASPIRIN [Suspect]
     Indication: CORONARY ARTERY DISEASE
     Dosage: 81MG DAILY
     Dates: start: 20041209
  2. ASPIRIN [Suspect]
     Indication: PROPHYLAXIS
     Dosage: 81MG DAILY
     Dates: start: 20041209
  3. NPH INSULIN [Concomitant]
  4. VIT B6, [Concomitant]
  5. B12, [Concomitant]
  6. FOLATE, [Concomitant]
  7. ZN, [Concomitant]
  8. SE, [Concomitant]
  9. MG, [Concomitant]
  10. VIT E, [Concomitant]
  11. NIACIN [Concomitant]
  12. OMEPRAZOLE [Concomitant]
  13. ALBUTEROL [Concomitant]
  14. GEMFIBROZIL [Concomitant]
  15. GABAPENTIN [Concomitant]
  16. 1% HYDROCORTISONE CREAM [Concomitant]
  17. LOSARTEN [Concomitant]
  18. CEPHALEXIN [Concomitant]

REACTIONS (6)
  - ABDOMINAL PAIN [None]
  - DIVERTICULUM [None]
  - DIZZINESS POSTURAL [None]
  - FAECES DISCOLOURED [None]
  - HAEMATOCHEZIA [None]
  - LOWER GASTROINTESTINAL HAEMORRHAGE [None]
